FAERS Safety Report 6253985-5 (Version None)
Quarter: 2009Q3

REPORT INFORMATION
  Report Type: 
  Country: None (occurrence: None)
  Receive Date: 20090702
  Receipt Date: 20090625
  Transmission Date: 20100115
  Serious: Yes (Death)
  Sender: FDA-Public Use
  Company Number: US-TEVA-036691

PATIENT
  Age: 31 Year
  Sex: Female

DRUGS (2)
  1. SEASONIQUE [Suspect]
  2. LYBREL [Suspect]

REACTIONS (2)
  - CEREBRAL THROMBOSIS [None]
  - LOSS OF CONSCIOUSNESS [None]
